FAERS Safety Report 19450531 (Version 3)
Quarter: 2021Q3

REPORT INFORMATION
  Report Type: Spontaneous
  Country: US (occurrence: US)
  Receive Date: 20210622
  Receipt Date: 20210922
  Transmission Date: 20211014
  Serious: Yes (Other)
  Sender: FDA-Public Use
  Company Number: US-BEH-2021132958

PATIENT
  Sex: Female

DRUGS (3)
  1. HIZENTRA [Suspect]
     Active Substance: HUMAN IMMUNOGLOBULIN G
     Indication: RHEUMATOID ARTHRITIS
     Dosage: 8 GRAM, QW
     Route: 058
     Dates: start: 20210111
  2. HIZENTRA [Suspect]
     Active Substance: HUMAN IMMUNOGLOBULIN G
     Indication: IMMUNODEFICIENCY COMMON VARIABLE
     Dosage: 10 GRAM, QW
     Route: 058
     Dates: start: 20210111
  3. HIZENTRA [Suspect]
     Active Substance: HUMAN IMMUNOGLOBULIN G
     Indication: RHEUMATOID ARTHRITIS

REACTIONS (8)
  - Peripheral swelling [Unknown]
  - Deep vein thrombosis [Unknown]
  - Off label use [Unknown]
  - No adverse event [Unknown]
  - Pulmonary embolism [Unknown]
  - Headache [Unknown]
  - Meningitis aseptic [Unknown]
  - Joint swelling [Unknown]
